FAERS Safety Report 18947553 (Version 7)
Quarter: 2022Q2

REPORT INFORMATION
  Report Type: Spontaneous
  Country: IN (occurrence: IN)
  Receive Date: 20210226
  Receipt Date: 20220610
  Transmission Date: 20220721
  Serious: Yes (Hospitalization, Other)
  Sender: FDA-Public Use
  Company Number: IN-PFIZER INC-2021080130

PATIENT
  Age: 41 Year
  Sex: Male

DRUGS (6)
  1. LORLATINIB [Suspect]
     Active Substance: LORLATINIB
     Dosage: 100 MG, DAILY
     Route: 048
     Dates: start: 20210125
  2. LORLATINIB [Suspect]
     Active Substance: LORLATINIB
     Dosage: 100 MG, 1X/DAY
     Route: 048
     Dates: start: 20210325
  3. LORLATINIB [Suspect]
     Active Substance: LORLATINIB
     Dosage: 100 MG, DAILY
     Route: 048
     Dates: start: 20210421
  4. LORLATINIB [Suspect]
     Active Substance: LORLATINIB
     Dosage: 100 MG, DAILY
     Route: 048
     Dates: start: 20210521
  5. EFCORLIN [HYDROCORTISONE HYDROGEN SUCCINATE] [Concomitant]
     Indication: Chemotherapy
     Dosage: 100 MG
     Route: 037
  6. METHOTREXATE [Concomitant]
     Active Substance: METHOTREXATE
     Indication: Chemotherapy
     Dosage: 15 MG
     Route: 037

REACTIONS (14)
  - Ulcer [Unknown]
  - Cerebral ischaemia [Unknown]
  - Cerebellar atrophy [Unknown]
  - Cerebral atrophy [Unknown]
  - Cerebellar haemorrhage [Unknown]
  - Gait disturbance [Unknown]
  - Mucosal inflammation [Unknown]
  - Nausea [Unknown]
  - Balance disorder [Recovered/Resolved]
  - White matter lesion [Unknown]
  - Magnetic resonance imaging abnormal [Unknown]
  - Haemoglobin decreased [Unknown]
  - White blood cell count increased [Unknown]
  - Blood glucose increased [Unknown]

NARRATIVE: CASE EVENT DATE: 20210301
